FAERS Safety Report 12072961 (Version 1)
Quarter: 2016Q1

REPORT INFORMATION
  Report Type: Spontaneous
  Country: NL (occurrence: NL)
  Receive Date: 20160212
  Receipt Date: 20160212
  Transmission Date: 20160526
  Serious: Yes (Disabling)
  Sender: FDA-Public Use
  Company Number: NL-TEVA-634158ISR

PATIENT
  Sex: Male
  Weight: 85 kg

DRUGS (2)
  1. METOJECT INJVLST 15MG/0,3ML (50MG/ML) [Concomitant]
     Indication: RHEUMATOID ARTHRITIS
     Dosage: .0429 ML DAILY;
     Route: 058
     Dates: start: 2014
  2. FOLIUMZUUR TABLET 5 MG [Suspect]
     Active Substance: FOLIC ACID
     Indication: RHEUMATOID ARTHRITIS
     Dosage: .7143 MILLIGRAM DAILY;
     Route: 048
     Dates: start: 2014, end: 2016

REACTIONS (4)
  - Malaise [Recovered/Resolved]
  - Abdominal pain [Recovered/Resolved]
  - Abdominal discomfort [Recovered/Resolved]
  - Nausea [Recovered/Resolved]

NARRATIVE: CASE EVENT DATE: 2014
